FAERS Safety Report 8450291-5 (Version None)
Quarter: 2012Q2

REPORT INFORMATION
  Report Type: 
  Country: None (occurrence: None)
  Receive Date: 20120614
  Receipt Date: 20120614
  Transmission Date: 20120825
  Serious: Yes (Hospitalization)
  Sender: FDA-Public Use
  Company Number: None

PATIENT
  Sex: Female
  Weight: 58 kg

DRUGS (1)
  1. CISPLATIN [Suspect]

REACTIONS (6)
  - COUGH [None]
  - ABDOMINAL PAIN [None]
  - VIRAL INFECTION [None]
  - CULTURE URINE POSITIVE [None]
  - PYREXIA [None]
  - CONSTIPATION [None]
